FAERS Safety Report 4885752-9 (Version None)
Quarter: 2006Q1

REPORT INFORMATION
  Report Type: 
  Country: None (occurrence: None)
  Receive Date: 20060117
  Receipt Date: 20060105
  Transmission Date: 20060701
  Serious: Yes (Other)
  Sender: FDA-Public Use
  Company Number: 505#3#2006-00015

PATIENT
  Age: 60 Year
  Sex: Male

DRUGS (1)
  1. CEFURIM ECO 500  (CEFUROXIME) [Suspect]
     Indication: UPPER RESPIRATORY TRACT INFECTION
     Dosage: 1 DOSAGE FORMS
     Route: 048
     Dates: start: 20051128, end: 20051129

REACTIONS (2)
  - FOREIGN BODY TRAUMA [None]
  - OESOPHAGEAL OBSTRUCTION [None]
